FAERS Safety Report 17056561 (Version 1)
Quarter: 2019Q4

REPORT INFORMATION
  Report Type: Spontaneous
  Country: US (occurrence: US)
  Receive Date: 20191121
  Receipt Date: 20191121
  Transmission Date: 20200122
  Serious: Yes (Other)
  Sender: FDA-Public Use
  Company Number: US-ABBVIE-19K-163-3003135-00

PATIENT
  Sex: Female

DRUGS (4)
  1. ORILISSA [Suspect]
     Active Substance: ELAGOLIX SODIUM
     Indication: ENDOMETRIOSIS
     Route: 048
     Dates: start: 201809, end: 201903
  2. CALCIUM [Concomitant]
     Active Substance: CALCIUM
     Indication: BONE LOSS
     Route: 065
  3. ORILISSA [Suspect]
     Active Substance: ELAGOLIX SODIUM
     Indication: PRODUCT USED FOR UNKNOWN INDICATION
     Route: 048
     Dates: start: 201903
  4. VITAMIN D [Concomitant]
     Active Substance: VITAMIN D NOS
     Indication: BONE LOSS
     Route: 065

REACTIONS (13)
  - Neoplasm [Not Recovered/Not Resolved]
  - Malaise [Recovered/Resolved]
  - Unevaluable event [Recovered/Resolved]
  - Endometriosis [Recovered/Resolved]
  - Mood altered [Recovered/Resolved]
  - Abdominal pain [Not Recovered/Not Resolved]
  - Endometriosis [Recovered/Resolved]
  - Hot flush [Recovered/Resolved]
  - Uterine pain [Not Recovered/Not Resolved]
  - Arthralgia [Recovered/Resolved]
  - Haemorrhage [Recovered/Resolved]
  - Bone loss [Not Recovered/Not Resolved]
  - Arthralgia [Recovering/Resolving]

NARRATIVE: CASE EVENT DATE: 2018
